FAERS Safety Report 21520352 (Version 2)
Quarter: 2022Q4

REPORT INFORMATION
  Report Type: Spontaneous
  Country: JP (occurrence: JP)
  Receive Date: 20221028
  Receipt Date: 20221212
  Transmission Date: 20230112
  Serious: Yes (Other)
  Sender: FDA-Public Use
  Company Number: JP-BRISTOL-MYERS SQUIBB COMPANY-BMS-2022-022033

PATIENT
  Age: 75 Year
  Sex: Female

DRUGS (4)
  1. NIVOLUMAB [Suspect]
     Active Substance: NIVOLUMAB
     Indication: Malignant melanoma
     Dosage: 48 CYCLES
     Route: 041
     Dates: start: 201603
  2. NIVOLUMAB [Suspect]
     Active Substance: NIVOLUMAB
     Indication: Malignant melanoma
  3. IPILIMUMAB [Suspect]
     Active Substance: IPILIMUMAB
     Indication: Malignant melanoma
     Dosage: THREE SUBSEQUENT CYCLES (AFTER 48 CYCLES OF NIVOLUMAB)
     Route: 041
     Dates: start: 201905
  4. IPILIMUMAB [Suspect]
     Active Substance: IPILIMUMAB
     Indication: Malignant melanoma

REACTIONS (5)
  - Immune-mediated hepatitis [Recovered/Resolved]
  - Keratitis [Recovered/Resolved]
  - Stomatitis [Recovered/Resolved]
  - Rash [Unknown]
  - Laryngitis [Unknown]

NARRATIVE: CASE EVENT DATE: 20190101
